FAERS Safety Report 24250995 (Version 1)
Quarter: 2024Q3

REPORT INFORMATION
  Report Type: Spontaneous
  Country: FR (occurrence: FR)
  Receive Date: 20240826
  Receipt Date: 20240826
  Transmission Date: 20241017
  Serious: Yes (Other)
  Sender: MYLAN
  Company Number: FR-UCBSA-2024039581

PATIENT
  Age: 69 Year
  Sex: Male

DRUGS (4)
  1. LEVETIRACETAM [Suspect]
     Active Substance: LEVETIRACETAM
     Indication: Posterior reversible encephalopathy syndrome
     Dosage: 1000 MILLIGRAM, QD (500 MILLIGRAM, 2X/DAY (BID))
     Route: 048
  2. CEFTRIAXONE [Concomitant]
     Active Substance: CEFTRIAXONE\CEFTRIAXONE SODIUM
     Indication: Lyme disease
     Dosage: 2 GRAM, QD (ONCE DAILY)
     Route: 042
  3. TIAPRIDE [Concomitant]
     Active Substance: TIAPRIDE
     Indication: Disorientation
     Dosage: UNK
     Route: 065
  4. TIAPRIDE [Concomitant]
     Active Substance: TIAPRIDE
     Indication: Agitation

REACTIONS (6)
  - Urinary retention [Unknown]
  - Back pain [Unknown]
  - Neuralgia [Unknown]
  - Insomnia [Unknown]
  - Drug effective for unapproved indication [Unknown]
  - Off label use [Unknown]
